FAERS Safety Report 7463710-8 (Version None)
Quarter: 2011Q2

REPORT INFORMATION
  Report Type: 
  Country: None (occurrence: None)
  Receive Date: 20110506
  Receipt Date: 20110502
  Transmission Date: 20111010
  Serious: Yes (Other)
  Sender: FDA-Public Use
  Company Number: FR-BRISTOL-MYERS SQUIBB COMPANY-15717820

PATIENT
  Age: 59 Year
  Sex: Male

DRUGS (7)
  1. SITAGLIPTIN PHOSPHATE/METFORMIN HYDROCHLORIDE [Suspect]
     Indication: TYPE 2 DIABETES MELLITUS
     Dosage: 1000MG-50MG
     Dates: start: 20090901
  2. SITAGLIPTIN PHOSPHATE [Concomitant]
     Indication: TYPE 2 DIABETES MELLITUS
     Dosage: MAY2009-SEP2009,
     Dates: start: 20090301, end: 20110112
  3. GLICLAZIDE [Concomitant]
     Dates: start: 20100213
  4. PRAVASTATIN [Concomitant]
  5. ACARBOSE [Concomitant]
  6. IRBESARTAN [Suspect]
     Indication: HYPERTENSION
     Dates: start: 20101223, end: 20110112
  7. PRAZEPAM [Concomitant]

REACTIONS (5)
  - ASPARTATE AMINOTRANSFERASE INCREASED [None]
  - LIPASE INCREASED [None]
  - PYREXIA [None]
  - GAMMA-GLUTAMYLTRANSFERASE INCREASED [None]
  - ALANINE AMINOTRANSFERASE INCREASED [None]
